FAERS Safety Report 24161879 (Version 1)
Quarter: 2024Q3

REPORT INFORMATION
  Report Type: Other
  Country: DE (occurrence: DE)
  Receive Date: 20240801
  Receipt Date: 20240801
  Transmission Date: 20241017
  Serious: Yes (Other)
  Sender: KNIGHT THERAPEUTICS
  Company Number: DE-Knight Therapeutics (USA) Inc.-2159843

PATIENT
  Age: 26 Year
  Sex: Male

DRUGS (1)
  1. IMPAVIDO [Suspect]
     Active Substance: MILTEFOSINE
     Indication: Leishmaniasis
     Route: 065

REACTIONS (2)
  - Skin reaction [Unknown]
  - Treatment failure [Unknown]
